FAERS Safety Report 23160867 (Version 1)
Quarter: 2023Q4

REPORT INFORMATION
  Report Type: Spontaneous
  Country: US (occurrence: None)
  Receive Date: 20231108
  Receipt Date: 20231108
  Transmission Date: 20240110
  Serious: Yes (Hospitalization)
  Sender: FDA-Public Use
  Company Number: None

PATIENT
  Sex: Female
  Weight: 124.3 kg

DRUGS (18)
  1. TRABECTEDIN [Suspect]
     Active Substance: TRABECTEDIN
     Indication: Uterine leiomyosarcoma
     Dates: end: 20231024
  2. ATORVASTATIN [Concomitant]
     Active Substance: ATORVASTATIN
  3. VITAMIN D3 [Concomitant]
     Active Substance: CHOLECALCIFEROL
  4. ENTECAVIR [Concomitant]
     Active Substance: ENTECAVIR
  5. GABAPENTIN [Concomitant]
     Active Substance: GABAPENTIN
  6. LEVETIRACETAM [Concomitant]
     Active Substance: LEVETIRACETAM
  7. LIDOCAINE HYDROCHLORIDE [Concomitant]
     Active Substance: DEXTROSE MONOHYDRATE\EPINEPHRINE\EPINEPHRINE BITARTRATE\LIDOCAINE\LIDOCAINE HYDROCHLORIDE\LIDOCAINE
  8. LIDOCAINE-PRILOCAINE CREAM [Concomitant]
  9. LORAZEPAM [Concomitant]
     Active Substance: LORAZEPAM
  10. NALOXONE [Concomitant]
     Active Substance: NALOXONE
  11. OMEPRAZOLE [Concomitant]
     Active Substance: OMEPRAZOLE
  12. ONDANSETRON [Concomitant]
     Active Substance: ONDANSETRON
  13. POLYETHYLENE GLYCOL [Concomitant]
     Active Substance: POLYETHYLENE GLYCOL
  14. SODIUM CHLORIDE (SALINE MIST) [Concomitant]
  15. DEXAMETHASONE [Concomitant]
     Active Substance: DEXAMETHASONE
  16. DOCUSATE SODIUM-SENNOSIDES [Concomitant]
     Active Substance: DOCUSATE SODIUM\SENNOSIDES A AND B
  17. FOSAPREPITANT [Concomitant]
     Active Substance: FOSAPREPITANT
  18. GRANISETRON [Concomitant]
     Active Substance: GRANISETRON

REACTIONS (3)
  - Muscular weakness [None]
  - Fall [None]
  - Chest pain [None]

NARRATIVE: CASE EVENT DATE: 20231029
